FAERS Safety Report 10600299 (Version 2)
Quarter: 2014Q4

REPORT INFORMATION
  Report Type: Spontaneous
  Country: JP (occurrence: JP)
  Receive Date: 20141123
  Receipt Date: 20141123
  Transmission Date: 20150529
  Serious: Yes (Other)
  Sender: FDA-Public Use
  Company Number: PHHY2014JP135653

PATIENT
  Age: 74 Year
  Sex: Male
  Weight: 59.6 kg

DRUGS (7)
  1. CICLOSPORIN [Interacting]
     Active Substance: CYCLOSPORINE
     Dosage: 100 MG, UNK
     Route: 048
  2. CICLOSPORIN [Suspect]
     Active Substance: CYCLOSPORINE
     Indication: INTERSTITIAL LUNG DISEASE
     Dosage: 100 MG, QD
     Route: 048
  3. CICLOSPORIN [Interacting]
     Active Substance: CYCLOSPORINE
     Dosage: 150 MG, QD
     Route: 048
  4. PREDNISOLONE. [Suspect]
     Active Substance: PREDNISOLONE
     Indication: INTERSTITIAL LUNG DISEASE
     Route: 048
  5. CICLOSPORIN [Interacting]
     Active Substance: CYCLOSPORINE
     Dosage: 120 MG, UNK
     Route: 048
  6. CORTICOSTEROIDS [Suspect]
     Active Substance: CORTICOSTEROID NOS
     Indication: PRODUCT USED FOR UNKNOWN INDICATION
     Route: 042
  7. MICONAZOLE [Interacting]
     Active Substance: MICONAZOLE
     Indication: ORAL CANDIDIASIS
     Route: 065

REACTIONS (4)
  - Immunosuppressant drug level increased [Recovered/Resolved]
  - Cytomegalovirus infection [Recovered/Resolved]
  - Oral candidiasis [Recovered/Resolved]
  - Drug interaction [Recovered/Resolved]
